FAERS Safety Report 21696128 (Version 1)
Quarter: 2022Q4

REPORT INFORMATION
  Report Type: Spontaneous
  Country: FR (occurrence: FR)
  Receive Date: 20221207
  Receipt Date: 20221207
  Transmission Date: 20230112
  Serious: Yes (Death)
  Sender: FDA-Public Use
  Company Number: FR-JNJFOC-20221155788

PATIENT
  Age: 77 Year
  Sex: Male

DRUGS (3)
  1. DEXAMETHASONE [Suspect]
     Active Substance: DEXAMETHASONE
     Indication: Plasma cell myeloma
     Dosage: 4 WEEKS/CYCLE; FIRST LINE TREATMENT
     Route: 065
     Dates: end: 20190905
  2. VELCADE [Suspect]
     Active Substance: BORTEZOMIB
     Indication: Plasma cell myeloma
     Dosage: 2 WEEKS/CYCLE; FIRST LINE TREATMENT
     Route: 065
     Dates: end: 20190905
  3. CYCLOPHOSPHAMIDE [Suspect]
     Active Substance: CYCLOPHOSPHAMIDE
     Indication: Plasma cell myeloma
     Dosage: 1 WEEK/CYCLE; FIRST LINE TREATMENT
     Route: 065
     Dates: end: 20190905

REACTIONS (2)
  - Septic shock [Fatal]
  - Intentional product use issue [Unknown]
